FAERS Safety Report 20291159 (Version 2)
Quarter: 2022Q4

REPORT INFORMATION
  Report Type: Other
  Country: AE (occurrence: None)
  Receive Date: 20220104
  Receipt Date: 20221013
  Transmission Date: 20230113
  Serious: Yes (Hospitalization)
  Sender: FDA-Public Use
  Company Number: AE-ROCHE-2994711

PATIENT
  Sex: Female

DRUGS (2)
  1. EVRYSDI [Suspect]
     Active Substance: RISDIPLAM
     Indication: Spinal muscular atrophy
     Route: 065
  2. EVRYSDI [Suspect]
     Active Substance: RISDIPLAM
     Route: 065

REACTIONS (4)
  - Pneumothorax [Unknown]
  - Malaise [Unknown]
  - Ill-defined disorder [Unknown]
  - Pallor [Unknown]
